FAERS Safety Report 18938550 (Version 1)
Quarter: 2021Q1

REPORT INFORMATION
  Report Type: Spontaneous
  Country: US (occurrence: US)
  Receive Date: 20210224
  Receipt Date: 20210224
  Transmission Date: 20210420
  Serious: Yes (Life-Threatening, Disabling)
  Sender: FDA-Public Use
  Company Number: None

PATIENT
  Age: 36 Year
  Sex: Male
  Weight: 93.15 kg

DRUGS (9)
  1. CAYSTON [Concomitant]
     Active Substance: AZTREONAM
  2. URSODIAL [Concomitant]
  3. GEMCITABINE. [Concomitant]
     Active Substance: GEMCITABINE
  4. VITAMIN D [Concomitant]
     Active Substance: VITAMIN D NOS
  5. TRIKAFTA [Suspect]
     Active Substance: ELEXACAFTOR\IVACAFTOR\TEZACAFTOR
     Indication: CYSTIC FIBROSIS
     Dosage: ?          QUANTITY:84 CAPSULE(S);?
     Route: 048
     Dates: start: 20191108
  6. PULMOZYME [Concomitant]
     Active Substance: DORNASE ALFA
  7. CISPLATIN. [Concomitant]
     Active Substance: CISPLATIN
  8. NOVOLOG [Concomitant]
     Active Substance: INSULIN ASPART
  9. CREON [Concomitant]
     Active Substance: PANCRELIPASE AMYLASE\PANCRELIPASE LIPASE\PANCRELIPASE PROTEASE

REACTIONS (3)
  - Liver disorder [None]
  - Hepatic mass [None]
  - Lymphadenopathy [None]

NARRATIVE: CASE EVENT DATE: 20201226
